FAERS Safety Report 4545388-6 (Version None)
Quarter: 2005Q1

REPORT INFORMATION
  Report Type: 
  Country: None (occurrence: None)
  Receive Date: 20050103
  Receipt Date: 20041223
  Transmission Date: 20050727
  Serious: Yes (Disabling)
  Sender: FDA-Public Use
  Company Number: DEWYE298921DEC04

PATIENT
  Age: 72 Year
  Sex: Male

DRUGS (16)
  1. RAPAMUNE [Suspect]
     Indication: PROPHYLAXIS AGAINST TRANSPLANT REJECTION
     Dosage: SEE IMAGE
     Dates: start: 20031111, end: 20031111
  2. RAPAMUNE [Suspect]
     Indication: PROPHYLAXIS AGAINST TRANSPLANT REJECTION
     Dosage: SEE IMAGE
     Dates: start: 20031112, end: 20031124
  3. RAPAMUNE [Suspect]
     Indication: PROPHYLAXIS AGAINST TRANSPLANT REJECTION
     Dosage: SEE IMAGE
     Dates: start: 20031125, end: 20040226
  4. TACROLIMUS (TACROLIMUS) [Concomitant]
  5. PREDNISONE [Concomitant]
  6. DIOVAN HCT [Concomitant]
  7. FUROSEMIDE [Concomitant]
  8. METOPROLOL TARTRATE [Concomitant]
  9. ISOSORBIDE DINITRATE [Concomitant]
  10. STARLIX [Concomitant]
  11. AMPHO-MORONAL (AMPHOTERICIN B) [Concomitant]
  12. ASPIRIN [Concomitant]
  13. PANTOZOL (PANTOPRAZOLE SODIUM) [Concomitant]
  14. ATORVASTATIN CALCIUM [Concomitant]
  15. BENZBROMARONE (BENZBROMARONE) [Concomitant]
  16. CALCIUM CARBONATE (CALCIUM CARBONATE) [Concomitant]

REACTIONS (1)
  - TRANSPLANT FAILURE [None]
